FAERS Safety Report 8490010-X (Version None)
Quarter: 2012Q3

REPORT INFORMATION
  Report Type: 
  Country: None (occurrence: None)
  Receive Date: 20120705
  Receipt Date: 20120628
  Transmission Date: 20120928
  Serious: Yes (Other)
  Sender: FDA-Public Use
  Company Number: PHHY2012US056537

PATIENT
  Age: 61 Year
  Sex: Female

DRUGS (1)
  1. ASPIRIN [Suspect]
     Dosage: 0.5 TO 2 DF
     Route: 048

REACTIONS (10)
  - THYROID CANCER [None]
  - NASAL CONGESTION [None]
  - COUGH [None]
  - EPISTAXIS [None]
  - WRIST FRACTURE [None]
  - WRONG TECHNIQUE IN DRUG USAGE PROCESS [None]
  - BRONCHITIS [None]
  - APTYALISM [None]
  - INCORRECT DRUG ADMINISTRATION DURATION [None]
  - CONJUNCTIVITIS [None]
